FAERS Safety Report 8612701-X (Version None)
Quarter: 2012Q3

REPORT INFORMATION
  Report Type: 
  Country: None (occurrence: None)
  Receive Date: 20120822
  Receipt Date: 20111020
  Transmission Date: 20120928
  Serious: No
  Sender: FDA-Public Use
  Company Number: US-ASTRAZENECA-2011SE48041

PATIENT
  Age: 79 Year
  Sex: Female

DRUGS (3)
  1. SYMBICORT [Suspect]
     Dosage: UNKNWON FREQUENCY
     Route: 055
  2. LEVAQUIN [Concomitant]
  3. INHALERS (THREE) [Concomitant]

REACTIONS (4)
  - LUNG DISORDER [None]
  - BRONCHIECTASIS [None]
  - LUNG INFECTION [None]
  - MALAISE [None]
